FAERS Safety Report 8315407-X (Version None)
Quarter: 2012Q2

REPORT INFORMATION
  Report Type: 
  Country: None (occurrence: None)
  Receive Date: 20120426
  Receipt Date: 20120419
  Transmission Date: 20120825
  Serious: Yes (Hospitalization)
  Sender: FDA-Public Use
  Company Number: CZ-UCBSA-008302

PATIENT
  Age: 69 Year
  Sex: Female
  Weight: 76 kg

DRUGS (9)
  1. CERTOLIZUMAB PEGOL [Suspect]
     Indication: RHEUMATOID ARTHRITIS
     Dosage: STUDY CDP870-050.
     Route: 058
     Dates: start: 20051122, end: 20060510
  2. ISONIAZID [Concomitant]
     Indication: ANTIBIOTIC PROPHYLAXIS
     Route: 048
     Dates: start: 20090930
  3. CERTOLIZUMAB PEGOL [Suspect]
     Route: 058
     Dates: start: 20080422, end: 20100223
  4. CERTOLIZUMAB PEGOL [Suspect]
     Dates: start: 20100309
  5. NIMESULID [Concomitant]
     Indication: RHEUMATOID ARTHRITIS
     Route: 048
     Dates: start: 20050616
  6. CERTOLIZUMAB PEGOL [Suspect]
     Route: 058
     Dates: start: 20060510, end: 20080408
  7. METHOTREXATE [Concomitant]
     Indication: RHEUMATOID ARTHRITIS
     Route: 048
     Dates: start: 19990701
  8. BETAXOLOL [Concomitant]
     Indication: HYPERTENSION
     Route: 048
     Dates: start: 20050601
  9. PYRIDOXINE HCL [Concomitant]
     Indication: ANTIBIOTIC PROPHYLAXIS
     Route: 048
     Dates: start: 20090930

REACTIONS (1)
  - VENOUS THROMBOSIS [None]
